FAERS Safety Report 7309334-4 (Version None)
Quarter: 2011Q1

REPORT INFORMATION
  Report Type: 
  Country: None (occurrence: None)
  Receive Date: 20110223
  Receipt Date: 20110216
  Transmission Date: 20110831
  Serious: Yes (Hospitalization)
  Sender: FDA-Public Use
  Company Number: GB-PFIZER INC-2011005444

PATIENT
  Age: 64 Year
  Sex: Male

DRUGS (5)
  1. SUNITINIB MALATE [Suspect]
     Indication: TRANSITIONAL CELL CARCINOMA
     Dosage: 25 MG, UNK
     Route: 048
     Dates: start: 20100911, end: 20110103
  2. CANDESARTAN [Concomitant]
     Dosage: 16 MG, DAILY DOSE
     Route: 048
     Dates: start: 20091116, end: 20110105
  3. METFORMIN PFIZER [Suspect]
     Dosage: 500 MG, DAILY DOSE
     Route: 048
     Dates: start: 20090407, end: 20110105
  4. AMLODIPINE BESILATE [Suspect]
     Dosage: 10 MG, DAILY DOSE
     Route: 048
     Dates: start: 20090305, end: 20110106
  5. BENDROFLUMETHIAZIDE [Suspect]
     Dosage: 25 MG, UNK
     Route: 048
     Dates: start: 20090813, end: 20110105

REACTIONS (4)
  - INFLUENZA LIKE ILLNESS [None]
  - DIZZINESS [None]
  - PYREXIA [None]
  - HYPOTENSION [None]
